FAERS Safety Report 5447481-2 (Version None)
Quarter: 2007Q3

REPORT INFORMATION
  Report Type: 
  Country: None (occurrence: None)
  Receive Date: 20070910
  Receipt Date: 20070904
  Transmission Date: 20080115
  Serious: Yes (Other)
  Sender: FDA-Public Use
  Company Number: A0678422A

PATIENT
  Age: 35 Year
  Sex: Female

DRUGS (5)
  1. LAMICTAL [Suspect]
     Indication: BIPOLAR DISORDER
     Dosage: 100MG PER DAY
     Route: 048
     Dates: start: 20050701
  2. WELLBUTRIN [Suspect]
     Indication: DRUG USE FOR UNKNOWN INDICATION
     Route: 048
  3. LEXAPRO [Concomitant]
  4. AMBIEN [Concomitant]
     Route: 048
  5. CLONAZEPAM [Concomitant]

REACTIONS (1)
  - BLOOD CORTISOL DECREASED [None]
